FAERS Safety Report 7236469-7 (Version None)
Quarter: 2011Q1

REPORT INFORMATION
  Report Type: 
  Country: None (occurrence: None)
  Receive Date: 20110120
  Receipt Date: 20110112
  Transmission Date: 20110831
  Serious: Yes (Hospitalization)
  Sender: FDA-Public Use
  Company Number: JP-ASTRAZENECA-2011SE02595

PATIENT
  Age: 59 Year
  Sex: Male

DRUGS (3)
  1. CRESTOR [Suspect]
     Indication: HYPERCHOLESTEROLAEMIA
     Route: 048
     Dates: start: 20100511, end: 20101212
  2. MEXITIL [Suspect]
     Indication: DIABETES MELLITUS
     Dosage: 300 MG, DAILY, NUMBER OF SEPARATE DOSAGES UNKNOWN
     Route: 048
     Dates: end: 20101212
  3. NOVORAPID 30 MIX [Concomitant]
     Indication: DIABETES MELLITUS
     Route: 058

REACTIONS (1)
  - LIVER DISORDER [None]
